FAERS Safety Report 4398158-6 (Version None)
Quarter: 2004Q3

REPORT INFORMATION
  Report Type: 
  Country: None (occurrence: None)
  Receive Date: 20040713
  Receipt Date: 20040702
  Transmission Date: 20050211
  Serious: Yes (Other)
  Sender: FDA-Public Use
  Company Number: 2004218938JP

PATIENT
  Sex: 0

DRUGS (2)
  1. PROVERA [Suspect]
     Dates: start: 20031101
  2. PREMARIN [Suspect]
     Dates: start: 20031101

REACTIONS (2)
  - GASTRIC POLYPS [None]
  - STOMACH DISCOMFORT [None]
